FAERS Safety Report 20646193 (Version 1)
Quarter: 2022Q1

REPORT INFORMATION
  Report Type: Report from Study
  Country: ES (occurrence: ES)
  Receive Date: 20220329
  Receipt Date: 20220329
  Transmission Date: 20220423
  Serious: Yes (Hospitalization, Other)
  Sender: FDA-Public Use
  Company Number: ES-BRISTOL-MYERS SQUIBB COMPANY-BMS-2021-134845

PATIENT
  Age: 90 Year
  Sex: Male
  Weight: 64 kg

DRUGS (7)
  1. NIVOLUMAB [Suspect]
     Active Substance: NIVOLUMAB
     Indication: Neoplasm
     Dosage: 240 MILLIGRAM, Q2WK
     Route: 042
     Dates: start: 20211123, end: 20211123
  2. SERINE/THREONINE-PROTEIN KINASE 19 [Suspect]
     Active Substance: SERINE/THREONINE-PROTEIN KINASE 19
     Indication: Neoplasm
     Dosage: 1X10E6 PFU/ML EVERY 2 WEEKS (TOTAL VOLUME 2 ML)
     Route: 036
     Dates: start: 20211109, end: 20211109
  3. SERINE/THREONINE-PROTEIN KINASE 19 [Suspect]
     Active Substance: SERINE/THREONINE-PROTEIN KINASE 19
     Dosage: 1X10E7 PFU/ML EVERY 2 WEEKS (TOTAL VOLUME 6 ML)
     Route: 036
     Dates: start: 20211123, end: 20211123
  4. NIVOLUMAB\RELATLIMAB-RMBW [Suspect]
     Active Substance: NIVOLUMAB\RELATLIMAB-RMBW
     Indication: Neoplasm
     Dosage: 240 MILLIGRAM, Q2WK
     Route: 042
     Dates: start: 20211123, end: 20211123
  5. FINASTERIDE [Concomitant]
     Active Substance: FINASTERIDE
     Indication: Product used for unknown indication
     Dosage: 1 IN 1 DAY
     Route: 048
  6. LANSOPRAZOLE [Concomitant]
     Active Substance: LANSOPRAZOLE
     Indication: Product used for unknown indication
     Dosage: 1 IN 1 DAY
     Route: 048
  7. TAMSULOSIN HYDROCHLORIDE [Concomitant]
     Active Substance: TAMSULOSIN HYDROCHLORIDE
     Indication: Product used for unknown indication
     Dosage: 1 IN 1 DAY
     Route: 048

REACTIONS (2)
  - Delirium [Recovered/Resolved]
  - Immune-mediated encephalitis [Unknown]

NARRATIVE: CASE EVENT DATE: 20211129
